FAERS Safety Report 23964423 (Version 1)
Quarter: 2024Q2

REPORT INFORMATION
  Report Type: Spontaneous
  Country: CN (occurrence: CN)
  Receive Date: 20240612
  Receipt Date: 20240612
  Transmission Date: 20240716
  Serious: Yes (Hospitalization)
  Sender: FDA-Public Use
  Company Number: CN-ELI_LILLY_AND_COMPANY-CN202406000562

PATIENT
  Age: 68 Year
  Sex: Male
  Weight: 65 kg

DRUGS (6)
  1. GEMZAR [Suspect]
     Active Substance: GEMCITABINE HYDROCHLORIDE
     Indication: Chemotherapy
     Dosage: 1400 MG, DAILY
     Route: 041
     Dates: start: 20240514, end: 20240514
  2. SINTILIMAB [Suspect]
     Active Substance: SINTILIMAB
     Indication: Chemotherapy
     Dosage: 200 MG, DAILY
     Route: 041
     Dates: start: 20240514, end: 20240514
  3. LOBAPLATIN [Suspect]
     Active Substance: LOBAPLATIN
     Indication: Chemotherapy
     Dosage: 30 MG, DAILY
     Route: 041
     Dates: start: 20240514, end: 20240514
  4. SODIUM CHLORIDE [Concomitant]
     Active Substance: SODIUM CHLORIDE
     Indication: Vehicle solution use
     Dosage: 100 MG, DAILY
     Route: 041
     Dates: start: 20240514
  5. SODIUM CHLORIDE [Concomitant]
     Active Substance: SODIUM CHLORIDE
     Dosage: 100 MG, DAILY
     Route: 041
     Dates: start: 20240514
  6. DEXTROSE [Concomitant]
     Active Substance: DEXTROSE\DEXTROSE MONOHYDRATE
     Indication: Vehicle solution use
     Dosage: 250 ML, DAILY
     Route: 041
     Dates: start: 20240514, end: 20240514

REACTIONS (4)
  - Myelosuppression [Recovering/Resolving]
  - Haemoptysis [Recovering/Resolving]
  - Blood pressure increased [Recovering/Resolving]
  - Asthma [Recovering/Resolving]

NARRATIVE: CASE EVENT DATE: 20240519
